FAERS Safety Report 21541415 (Version 7)
Quarter: 2024Q1

REPORT INFORMATION
  Report Type: Spontaneous
  Country: US (occurrence: US)
  Receive Date: 20221102
  Receipt Date: 20240319
  Transmission Date: 20240410
  Serious: Yes (Hospitalization, Other)
  Sender: FDA-Public Use
  Company Number: US-PFIZER INC-PV202200094433

PATIENT
  Age: 77 Year
  Sex: Female
  Weight: 91.156 kg

DRUGS (2)
  1. XELJANZ XR [Suspect]
     Active Substance: TOFACITINIB CITRATE
     Indication: Psoriatic arthropathy
     Dosage: 11 MG, 1X/DAY
     Dates: start: 20210503, end: 20220422
  2. XELJANZ XR [Suspect]
     Active Substance: TOFACITINIB CITRATE
     Dosage: 11 MG, 1X/DAY
     Dates: start: 20221005

REACTIONS (9)
  - Neoplasm malignant [Recovered/Resolved]
  - Adenocarcinoma [Recovered/Resolved]
  - Sleeve gastrectomy [Unknown]
  - Weight decreased [Recovered/Resolved]
  - Blood pressure abnormal [Recovered/Resolved]
  - Thyroid disorder [Unknown]
  - Reactive gastropathy [Unknown]
  - Duodenitis [Unknown]
  - Road traffic accident [Not Recovered/Not Resolved]

NARRATIVE: CASE EVENT DATE: 20210914
